FAERS Safety Report 16478847 (Version 2)
Quarter: 2019Q3

REPORT INFORMATION
  Report Type: Spontaneous
  Country: US (occurrence: US)
  Receive Date: 20190626
  Receipt Date: 20190710
  Transmission Date: 20191004
  Serious: Yes (Hospitalization, Other)
  Sender: FDA-Public Use
  Company Number: US-BAYER-2019-121367

PATIENT
  Age: 60 Year
  Sex: Female

DRUGS (1)
  1. BETASERON [Suspect]
     Active Substance: INTERFERON BETA-1B
     Indication: MULTIPLE SCLEROSIS
     Dosage: 0.25 MG
     Route: 058
     Dates: start: 1997

REACTIONS (6)
  - Fall [None]
  - Pain [None]
  - Seizure [None]
  - Ligament sprain [None]
  - Depression [None]
  - Foot fracture [None]

NARRATIVE: CASE EVENT DATE: 20190630
